FAERS Safety Report 19154844 (Version 2)
Quarter: 2021Q2

REPORT INFORMATION
  Report Type: Report from Study
  Country: None (occurrence: US)
  Receive Date: 20210419
  Receipt Date: 20210609
  Transmission Date: 20210717
  Serious: Yes (Other)
  Sender: FDA-Public Use
  Company Number: US-ABBVIE-21K-163-3862812-00

PATIENT
  Sex: Male

DRUGS (2)
  1. IMBRUVICA [Suspect]
     Active Substance: IBRUTINIB
     Indication: LEUKAEMIA
  2. IMBRUVICA [Suspect]
     Active Substance: IBRUTINIB
     Indication: CHRONIC LYMPHOCYTIC LEUKAEMIA
     Route: 048
     Dates: start: 2020

REACTIONS (3)
  - Toe amputation [Recovering/Resolving]
  - Peripheral artery bypass [Recovering/Resolving]
  - Vascular operation [Unknown]
